FAERS Safety Report 14775534 (Version 2)
Quarter: 2018Q3

REPORT INFORMATION
  Report Type: Spontaneous
  Country: US (occurrence: US)
  Receive Date: 20180418
  Receipt Date: 20180927
  Transmission Date: 20181010
  Serious: Yes (Other)
  Sender: FDA-Public Use
  Company Number: US-ASTRAZENECA-2018SE46498

PATIENT
  Age: 53 Year
  Sex: Male
  Weight: 156.5 kg

DRUGS (29)
  1. LASIX [Concomitant]
     Active Substance: FUROSEMIDE
     Dosage: 1 TABLET BY MOUTH DAILY
     Route: 048
     Dates: start: 20170501
  2. FERROUS SULFATE. [Concomitant]
     Active Substance: FERROUS SULFATE
     Dosage: 1 TABLET TWICE DAILY
     Route: 048
     Dates: start: 20171020
  3. HYDROCODONE BITARTRATE AND ACETAMINOPHEN [Concomitant]
     Active Substance: ACETAMINOPHEN\HYDROCODONE BITARTRATE
     Route: 065
     Dates: start: 20080131
  4. PREDNISONE. [Concomitant]
     Active Substance: PREDNISONE
     Dosage: 1 TABLET EVERY DAY
     Route: 048
     Dates: start: 20170122
  5. NEXIUM [Suspect]
     Active Substance: ESOMEPRAZOLE MAGNESIUM
     Route: 048
     Dates: start: 20080104, end: 20171020
  6. ASPIRIN. [Concomitant]
     Active Substance: ASPIRIN
     Dosage: ONCE A DAY
     Route: 048
  7. METOLAZONE. [Concomitant]
     Active Substance: METOLAZONE
     Dosage: 1 TABLET A DAY
     Route: 048
     Dates: start: 20180627
  8. HYDRALAZINE [Concomitant]
     Active Substance: HYDRALAZINE HYDROCHLORIDE
     Dosage: 1 TABLET 3 TIMES A DAY
     Route: 048
     Dates: start: 20170301
  9. ALLOPURINOL. [Concomitant]
     Active Substance: ALLOPURINOL
     Route: 048
     Dates: start: 20120207
  10. NEXIUM [Suspect]
     Active Substance: ESOMEPRAZOLE MAGNESIUM
     Dosage: GENERIC
     Route: 065
  11. ALLOPURINOL. [Concomitant]
     Active Substance: ALLOPURINOL
     Route: 048
     Dates: start: 20080102
  12. ACETAMINOPHEN. [Concomitant]
     Active Substance: ACETAMINOPHEN
     Dosage: 1 TABLET EVERY 6 HOURS
     Route: 048
     Dates: start: 20170122
  13. BENZONATATE. [Concomitant]
     Active Substance: BENZONATATE
     Route: 048
     Dates: start: 20131025
  14. LOSARTAN POTASSIUM. [Concomitant]
     Active Substance: LOSARTAN POTASSIUM
     Route: 048
     Dates: start: 20120501
  15. CARTIA XT [Concomitant]
     Active Substance: DILTIAZEM HYDROCHLORIDE
     Route: 048
     Dates: start: 20080120
  16. COLCHICINE. [Concomitant]
     Active Substance: COLCHICINE
     Route: 048
     Dates: start: 20080104
  17. DIAZEPAM. [Concomitant]
     Active Substance: DIAZEPAM
     Dosage: 1 TABLET TWICE DAILY FOR 5 DAYS
     Route: 048
     Dates: start: 20170927
  18. CEPHALEXIN. [Concomitant]
     Active Substance: CEPHALEXIN
     Dosage: 1 CAPSULE EVERY DAY
     Route: 048
     Dates: start: 20160207
  19. ZYRTEC [Concomitant]
     Active Substance: CETIRIZINE HYDROCHLORIDE
     Dosage: 1 TABLET PER DAY
     Route: 048
     Dates: start: 20151127
  20. AMOX [Concomitant]
     Active Substance: UNSPECIFIED INGREDIENT
     Dosage: 1 TABLET EVERY DAY
     Route: 048
     Dates: start: 20160224
  21. FUROSEMIDE. [Concomitant]
     Active Substance: FUROSEMIDE
     Route: 048
     Dates: start: 20121218
  22. PRADAXA [Concomitant]
     Active Substance: DABIGATRAN ETEXILATE MESYLATE
     Route: 048
     Dates: start: 20120227
  23. WARFARIN SODIUM. [Concomitant]
     Active Substance: WARFARIN SODIUM
     Route: 048
     Dates: start: 20080120
  24. METOPROLOL. [Concomitant]
     Active Substance: METOPROLOL
     Route: 048
     Dates: start: 20080128
  25. FOLIC ACID. [Concomitant]
     Active Substance: FOLIC ACID
     Route: 048
     Dates: start: 20080102
  26. AZITHROMYCIN ANHYDROUS. [Concomitant]
     Active Substance: AZITHROMYCIN ANHYDROUS
     Dosage: 2 TABLET EVERY DAY
     Route: 048
     Dates: start: 20151127
  27. LORATADINE. [Concomitant]
     Active Substance: LORATADINE
     Dosage: 1 TABLET EVERY DAY
     Route: 048
     Dates: start: 20160207
  28. LISINOPRIL. [Concomitant]
     Active Substance: LISINOPRIL
     Route: 048
     Dates: start: 20120121
  29. DILTIAZEM. [Concomitant]
     Active Substance: DILTIAZEM
     Route: 048
     Dates: start: 20110606

REACTIONS (3)
  - Acute kidney injury [Not Recovered/Not Resolved]
  - Chronic kidney disease [Unknown]
  - Nephrogenic anaemia [Unknown]

NARRATIVE: CASE EVENT DATE: 2007
